FAERS Safety Report 8605921-1 (Version None)
Quarter: 2012Q3

REPORT INFORMATION
  Report Type: 
  Country: None (occurrence: None)
  Receive Date: 20120820
  Receipt Date: 20120815
  Transmission Date: 20120928
  Serious: Yes (Other)
  Sender: FDA-Public Use
  Company Number: DE-ROCHE-1086190

PATIENT
  Sex: Female

DRUGS (6)
  1. LAPATINIB [Suspect]
     Indication: BREAST CANCER METASTATIC
     Route: 048
     Dates: start: 20120501, end: 20120627
  2. XGEVA [Suspect]
     Dates: start: 20120706
  3. MAGNESIUM [Concomitant]
  4. XGEVA [Suspect]
     Indication: NEOPLASM MALIGNANT
     Dosage: 1ST DOSE
     Route: 058
     Dates: start: 20120601
  5. XELODA [Suspect]
     Indication: BREAST CANCER METASTATIC
     Route: 048
     Dates: start: 20120201, end: 20120627
  6. CALCIUM CARBONATE [Concomitant]
     Route: 048
     Dates: start: 20120601

REACTIONS (3)
  - PYREXIA [None]
  - LYMPHADENOPATHY [None]
  - ARTHRALGIA [None]
